FAERS Safety Report 6618832-8 (Version None)
Quarter: 2010Q1

REPORT INFORMATION
  Report Type: 
  Country: None (occurrence: None)
  Receive Date: 20100308
  Receipt Date: 20100225
  Transmission Date: 20100710
  Serious: Yes (Hospitalization, Other)
  Sender: FDA-Public Use
  Company Number: US-BAXTER-2010BH003124

PATIENT
  Age: 47 Year
  Sex: Male

DRUGS (18)
  1. DIANEAL [Suspect]
     Indication: PERITONEAL DIALYSIS
     Route: 033
     Dates: start: 20100128
  2. DIANEAL [Suspect]
     Route: 033
     Dates: start: 20091229, end: 20100120
  3. DIANEAL [Suspect]
     Route: 033
     Dates: start: 20091211, end: 20091221
  4. DIANEAL [Suspect]
     Route: 033
     Dates: start: 20091113, end: 20091205
  5. DIANEAL [Suspect]
     Route: 033
     Dates: start: 20090101, end: 20091104
  6. DIANEAL [Suspect]
     Indication: PERITONEAL DIALYSIS
     Route: 033
     Dates: start: 20100128
  7. DIANEAL [Suspect]
     Route: 033
     Dates: start: 20100120, end: 20100128
  8. DIANEAL [Suspect]
     Route: 033
     Dates: start: 20091229, end: 20100120
  9. DIANEAL [Suspect]
     Route: 033
     Dates: start: 20091221, end: 20091229
  10. DIANEAL [Suspect]
     Route: 033
     Dates: start: 20091211, end: 20091221
  11. DIANEAL [Suspect]
     Route: 033
     Dates: start: 20091205, end: 20091211
  12. DIANEAL [Suspect]
     Route: 033
     Dates: start: 20091113, end: 20091205
  13. DIANEAL [Suspect]
     Route: 033
     Dates: start: 20091104, end: 20091113
  14. DIANEAL [Suspect]
     Route: 033
     Dates: start: 20090101, end: 20091104
  15. AMLODIPINE [Concomitant]
     Indication: HYPERTENSION
     Route: 048
  16. VALSARTAN [Concomitant]
     Indication: HYPERTENSION
     Route: 048
  17. DEMADEX [Concomitant]
     Indication: HYPERTENSION
     Route: 048
  18. LABETALOL HCL [Concomitant]
     Indication: HYPERTENSION
     Route: 048

REACTIONS (4)
  - FLUID OVERLOAD [None]
  - INFECTION [None]
  - PERITONEAL CLOUDY EFFLUENT [None]
  - PERITONEAL EFFLUENT LEUKOCYTE COUNT INCREASED [None]
